FAERS Safety Report 7708007-3 (Version None)
Quarter: 2011Q3

REPORT INFORMATION
  Report Type: 
  Country: None (occurrence: None)
  Receive Date: 20110824
  Receipt Date: 20110816
  Transmission Date: 20111222
  Serious: Yes (Death, Hospitalization, Other)
  Sender: FDA-Public Use
  Company Number: US-CELGENEUS-163-21880-10062737

PATIENT
  Sex: Male

DRUGS (6)
  1. REVLIMID [Suspect]
     Indication: MULTIPLE MYELOMA
     Dosage: 25 MILLIGRAM
     Route: 048
     Dates: start: 20100213, end: 20100513
  2. DEXAMETHASONE [Concomitant]
     Indication: MULTIPLE MYELOMA
     Dosage: 4 MILLIGRAM
     Route: 065
  3. VITAMIN B-12 [Concomitant]
     Indication: VITAMIN B12 DEFICIENCY
     Dosage: 250 MILLIGRAM
     Route: 048
  4. OXYCODONE HCL [Concomitant]
     Indication: PAIN
     Dosage: 5 MILLIGRAM
     Route: 065
  5. OMEPRAZOLE [Concomitant]
     Dosage: 20 MILLIGRAM
     Route: 065
  6. OXYCONTIN [Concomitant]
     Indication: PAIN
     Dosage: 20 MILLIGRAM
     Route: 065

REACTIONS (5)
  - PANCYTOPENIA [None]
  - PULMONARY EMBOLISM [None]
  - CARDIO-RESPIRATORY ARREST [None]
  - ATRIAL FIBRILLATION [None]
  - DEEP VEIN THROMBOSIS [None]
